FAERS Safety Report 5279549-8 (Version None)
Quarter: 2007Q1

REPORT INFORMATION
  Report Type: 
  Country: None (occurrence: None)
  Receive Date: 20070328
  Receipt Date: 20070321
  Transmission Date: 20070707
  Serious: Yes (Hospitalization)
  Sender: FDA-Public Use
  Company Number: FR-MERCK-0703FRA00066

PATIENT
  Age: 71 Year
  Sex: Female

DRUGS (12)
  1. COSOPT [Suspect]
     Indication: GLAUCOMA
     Route: 047
  2. BISOPROLOL [Suspect]
     Indication: HYPERTENSION
     Route: 048
  3. ETANERCEPT [Suspect]
     Indication: RHEUMATOID ARTHRITIS
     Route: 058
  4. DEXAMETHASONE AND TOBRAMYCIN [Suspect]
     Route: 047
  5. CITALOPRAM HYDROBROMIDE [Suspect]
     Indication: DEPRESSION
     Route: 048
  6. BROMAZEPAM [Suspect]
     Indication: DEPRESSION
     Route: 048
  7. HYDROXYZINE HYDROCHLORIDE [Concomitant]
     Route: 048
  8. PREDNISONE [Concomitant]
     Indication: RHEUMATOID ARTHRITIS
     Route: 048
  9. FOSAMAX [Concomitant]
     Indication: OSTEOPOROSIS
     Route: 048
  10. AMLODIPINE BESYLATE [Concomitant]
     Indication: HYPERTENSION
     Route: 048
  11. LEVOTHYROXINE SODIUM [Concomitant]
     Indication: HYPOTHYROIDISM
     Route: 048
  12. POTASSIUM CHLORIDE [Concomitant]
     Route: 048

REACTIONS (2)
  - GRANULOCYTOPENIA [None]
  - THROMBOCYTOPENIA [None]
